FAERS Safety Report 5215756-8 (Version None)
Quarter: 2007Q1

REPORT INFORMATION
  Report Type: 
  Country: None (occurrence: None)
  Receive Date: 20070123
  Receipt Date: 20070113
  Transmission Date: 20070707
  Serious: Yes (Other)
  Sender: FDA-Public Use
  Company Number: PHEH2007US00858

PATIENT
  Age: 78 Year
  Sex: Female

DRUGS (1)
  1. ZELNORM [Suspect]
     Dosage: 6 MG, UNK
     Route: 048
     Dates: start: 20070113

REACTIONS (4)
  - ABDOMINAL PAIN [None]
  - DIARRHOEA [None]
  - DIZZINESS [None]
  - POLLAKIURIA [None]
